FAERS Safety Report 9086628 (Version 1)
Quarter: 2013Q1

REPORT INFORMATION
  Report Type: Report from Study
  Country: US (occurrence: US)
  Receive Date: 20130131
  Receipt Date: 20130131
  Transmission Date: 20140127
  Serious: No
  Sender: FDA-Public Use
  Company Number: US-ABBOTT-12P-163-0991206-00

PATIENT
  Age: 90 Year
  Sex: Female

DRUGS (3)
  1. HUMIRA [Suspect]
     Indication: CROHN^S DISEASE
     Dates: start: 2005
  2. OMEPRAZOLE [Concomitant]
     Indication: DYSPEPSIA
     Dosage: 1 PILL DAILY
  3. TRIMETHOPRIM [Concomitant]
     Indication: URINARY TRACT INFECTION
     Dosage: A LOW DOSE DAILY

REACTIONS (4)
  - Malaise [Not Recovered/Not Resolved]
  - Gastric disorder [Not Recovered/Not Resolved]
  - Pruritus [Not Recovered/Not Resolved]
  - Yellow skin [Not Recovered/Not Resolved]
